FAERS Safety Report 9440438 (Version 1)
Quarter: 2013Q3

REPORT INFORMATION
  Report Type: Report from Study
  Country: US (occurrence: US)
  Receive Date: 20130805
  Receipt Date: 20130805
  Transmission Date: 20140515
  Serious: Yes (Hospitalization)
  Sender: FDA-Public Use
  Company Number: PHHO2013US010035

PATIENT
  Age: 58 Year
  Sex: Male
  Weight: 94 kg

DRUGS (6)
  1. BLINDED AFINITOR [Suspect]
     Indication: SQUAMOUS CELL CARCINOMA OF HEAD AND NECK
     Dosage: DOUBLE BLIND
  2. BLINDED NO TREATMENT RECEIVED [Suspect]
     Indication: SQUAMOUS CELL CARCINOMA OF HEAD AND NECK
     Dosage: DOUBLE BLIND
  3. BLINDED PLACEBO [Suspect]
     Indication: SQUAMOUS CELL CARCINOMA OF HEAD AND NECK
     Dosage: DOUBLE BLIND
  4. COMPARATOR PACLITAXEL [Suspect]
     Indication: SQUAMOUS CELL CARCINOMA OF HEAD AND NECK
     Dosage: 100 MG/M2, QW
     Route: 042
     Dates: start: 20130701, end: 20130715
  5. 5-FLUOROURACIL [Suspect]
     Indication: TONGUE NEOPLASM MALIGNANT STAGE UNSPECIFIED
     Dosage: 600 MG/M2, QD
     Route: 042
     Dates: start: 20130630, end: 20130705
  6. HYDREA [Suspect]
     Indication: TONGUE NEOPLASM MALIGNANT STAGE UNSPECIFIED
     Dosage: 500 MG (5 DAYS), BID
     Route: 048
     Dates: start: 20130714, end: 20130719

REACTIONS (1)
  - Febrile neutropenia [Unknown]
